FAERS Safety Report 25476743 (Version 1)
Quarter: 2025Q2

REPORT INFORMATION
  Report Type: Spontaneous
  Country: DE (occurrence: DE)
  Receive Date: 20250625
  Receipt Date: 20250625
  Transmission Date: 20250717
  Serious: Yes (Hospitalization)
  Sender: CHEPLAPHARM
  Company Number: None

PATIENT
  Age: 54 Year
  Sex: Female

DRUGS (11)
  1. QUETIAPINE [Suspect]
     Active Substance: QUETIAPINE
     Dosage: DAILY DOSE: 25 MILLIGRAM
     Route: 048
     Dates: start: 20250111, end: 20250115
  2. QUETIAPINE [Suspect]
     Active Substance: QUETIAPINE
     Dosage: DAILY DOSE: 50 MILLIGRAM
     Route: 048
     Dates: start: 20250116, end: 20250130
  3. QUETIAPINE [Suspect]
     Active Substance: QUETIAPINE
     Dosage: DAILY DOSE: 25 MILLIGRAM
     Route: 048
     Dates: start: 20250131
  4. ARIPIPRAZOLE [Suspect]
     Active Substance: ARIPIPRAZOLE
     Dosage: DAILY DOSE: 5 MILLIGRAM
     Route: 048
     Dates: start: 20250105, end: 20250109
  5. ARIPIPRAZOLE [Suspect]
     Active Substance: ARIPIPRAZOLE
     Dosage: DAILY DOSE: 10 MILLIGRAM
     Route: 048
     Dates: start: 20250110, end: 20250130
  6. ARIPIPRAZOLE [Suspect]
     Active Substance: ARIPIPRAZOLE
     Dosage: DAILY DOSE: 15 MILLIGRAM
     Route: 048
     Dates: start: 20250131, end: 20250221
  7. ARIPIPRAZOLE [Suspect]
     Active Substance: ARIPIPRAZOLE
     Dosage: DAILY DOSE: 10 MILLIGRAM
     Route: 048
     Dates: start: 20250222
  8. TELMISARTAN [Concomitant]
     Active Substance: TELMISARTAN
     Dosage: DAILY DOSE: 80 MILLIGRAM
     Route: 048
     Dates: start: 20250130
  9. HYDROCHLOROTHIAZIDE [Concomitant]
     Active Substance: HYDROCHLOROTHIAZIDE
     Dosage: DAILY DOSE: 12.5 MILLIGRAM
     Route: 048
     Dates: start: 20250130
  10. AMLODIPINE [Concomitant]
     Active Substance: AMLODIPINE BESYLATE
  11. SEROTONIN [Concomitant]
     Active Substance: SEROTONIN

REACTIONS (1)
  - Headache [Recovered/Resolved]

NARRATIVE: CASE EVENT DATE: 20250209
